FAERS Safety Report 5644105-6 (Version None)
Quarter: 2008Q1

REPORT INFORMATION
  Report Type: 
  Country: None (occurrence: None)
  Receive Date: 20080226
  Receipt Date: 20080213
  Transmission Date: 20080703
  Serious: Yes (Hospitalization)
  Sender: FDA-Public Use
  Company Number: B0508538A

PATIENT
  Age: 46 Year
  Sex: Female
  Weight: 53.8873 kg

DRUGS (3)
  1. LAPATINIB TABLET (LAPATINIB) [Suspect]
     Indication: BREAST CANCER METASTATIC
     Dosage: ORAL
     Route: 048
     Dates: start: 20080114, end: 20080130
  2. CAPECITABINE (FORMULATION UNKNOWN) (CAPECITABINE) [Suspect]
     Indication: BREAST CANCER METASTATIC
     Dosage: CYCLIC/ORAL
     Route: 048
     Dates: start: 20080114, end: 20080130
  3. PREDNISOLONE [Concomitant]

REACTIONS (2)
  - DEVICE BREAKAGE [None]
  - INTESTINAL PERFORATION [None]
